FAERS Safety Report 24875116 (Version 2)
Quarter: 2025Q1

REPORT INFORMATION
  Report Type: Spontaneous
  Country: CA (occurrence: CA)
  Receive Date: 20250122
  Receipt Date: 20250219
  Transmission Date: 20250409
  Serious: Yes (Hospitalization, Other)
  Sender: PFIZER
  Company Number: CA-PFIZER INC-PV202400007134

PATIENT
  Age: 58 Year
  Sex: Female
  Weight: 84.7 kg

DRUGS (5)
  1. IBRANCE [Suspect]
     Active Substance: PALBOCICLIB
     Indication: Breast cancer metastatic
     Route: 048
     Dates: start: 20200804
  2. IBRANCE [Suspect]
     Active Substance: PALBOCICLIB
     Indication: Breast cancer female
     Route: 048
  3. FULVESTRANT [Concomitant]
     Active Substance: FULVESTRANT
     Dates: start: 20200804
  4. MIRTAZAPINE [Concomitant]
     Active Substance: MIRTAZAPINE
  5. PROPRANOLOL [Concomitant]
     Active Substance: PROPRANOLOL HYDROCHLORIDE

REACTIONS (7)
  - Ileostomy [Unknown]
  - Hepatic steatosis [Unknown]
  - Neoplasm progression [Unknown]
  - Weight decreased [Unknown]
  - Blood creatinine increased [Unknown]
  - Off label use [Unknown]
  - Product use issue [Unknown]

NARRATIVE: CASE EVENT DATE: 20200804
